FAERS Safety Report 7821128-X (Version None)
Quarter: 2011Q4

REPORT INFORMATION
  Report Type: 
  Country: None (occurrence: None)
  Receive Date: 20111018
  Receipt Date: 20111010
  Transmission Date: 20120403
  Serious: Yes (Other)
  Sender: FDA-Public Use
  Company Number: US-SANOFI-AVENTIS-2011SA067151

PATIENT
  Sex: Female

DRUGS (4)
  1. HUMALOG [Concomitant]
  2. BETA BLOCKING AGENTS [Concomitant]
  3. CLONIDINE [Concomitant]
  4. LANTUS [Suspect]
     Route: 058

REACTIONS (4)
  - EYE HAEMORRHAGE [None]
  - BLOOD GLUCOSE INCREASED [None]
  - DRUG INEFFECTIVE [None]
  - VISION BLURRED [None]
